FAERS Safety Report 4796838-1 (Version None)
Quarter: 2005Q4

REPORT INFORMATION
  Report Type: 
  Country: None (occurrence: None)
  Receive Date: 20051013
  Receipt Date: 20050823
  Transmission Date: 20060501
  Serious: Yes (Death)
  Sender: FDA-Public Use
  Company Number: FR-SANOFI-SYNTHELABO-A02200502256

PATIENT
  Age: 78 Month
  Sex: Male

DRUGS (1)
  1. STILNOX [Suspect]
     Indication: POISONING
     Dosage: UNK
     Route: 048
     Dates: start: 20041231

REACTIONS (3)
  - DROWNING [None]
  - DRUG TOXICITY [None]
  - POISONING [None]
